FAERS Safety Report 18581338 (Version 2)
Quarter: 2020Q4

REPORT INFORMATION
  Report Type: Report from Study
  Country: FI (occurrence: FI)
  Receive Date: 20201204
  Receipt Date: 20201215
  Transmission Date: 20210114
  Serious: Yes (Death, Other)
  Sender: FDA-Public Use
  Company Number: FI-MYLANLABS-2020M1099975

PATIENT
  Sex: Female

DRUGS (5)
  1. LEPONEX [Suspect]
     Active Substance: CLOZAPINE
     Indication: PRODUCT USED FOR UNKNOWN INDICATION
     Dosage: UNK
  2. LEPONEX [Interacting]
     Active Substance: CLOZAPINE
     Dosage: 350 MILLIGRAM, QD
  3. ZYPREXA [Concomitant]
     Active Substance: OLANZAPINE
     Dosage: UNK
  4. TRUXAL                             /00012101/ [Concomitant]
     Active Substance: CHLORPROTHIXENE
     Dosage: UNK
  5. KETIPINOR [Suspect]
     Active Substance: QUETIAPINE FUMARATE
     Indication: PRODUCT USED FOR UNKNOWN INDICATION
     Dosage: UNK

REACTIONS (12)
  - Toxicity to various agents [Fatal]
  - Product label issue [Unknown]
  - Drug interaction [Unknown]
  - Loss of consciousness [Unknown]
  - Neuroleptic malignant syndrome [Unknown]
  - Contusion [Unknown]
  - Fall [Unknown]
  - Mental disorder [Unknown]
  - Inflammation [Unknown]
  - Pain [Unknown]
  - Head injury [Unknown]
  - Antipsychotic drug level increased [Unknown]

NARRATIVE: CASE EVENT DATE: 202009
